FAERS Safety Report 4778187-0 (Version None)
Quarter: 2005Q3

REPORT INFORMATION
  Report Type: 
  Country: None (occurrence: None)
  Receive Date: 20050923
  Receipt Date: 20050923
  Transmission Date: 20060218
  Serious: Yes (Life-Threatening, Other)
  Sender: FDA-Public Use
  Company Number: None

PATIENT
  Sex: Female
  Weight: 65.318 kg

DRUGS (16)
  1. HCTZ/TRIAMTERENE 25MG/37.5MG [Suspect]
     Indication: HYPERTENSION
     Dosage: 25MG HCTZ/37.5MG  QAM PO
     Route: 048
     Dates: start: 20020510, end: 20050307
  2. ACETAMINOPHEN 325MG/OXYCODONE [Concomitant]
  3. BISACODYL [Concomitant]
  4. BUPROPION [Concomitant]
  5. CHLORDIAZEPOXIDE [Concomitant]
  6. CLONIDINE [Concomitant]
  7. DICYCLOMINE [Concomitant]
  8. DIPHENHYDRAMINE HCL [Concomitant]
  9. LACTULOSE [Concomitant]
  10. LEVOTHYROXINE SODIUM [Concomitant]
  11. MELOXICAM [Concomitant]
  12. NIFEDIPINE [Concomitant]
  13. OXYCODONE HCL [Concomitant]
  14. RIBAVIRIN [Concomitant]
  15. TRAZODONE [Concomitant]
  16. VERAPAMIL [Concomitant]

REACTIONS (8)
  - ALANINE AMINOTRANSFERASE DECREASED [None]
  - ANAEMIA [None]
  - ANAEMIA VITAMIN B12 DEFICIENCY [None]
  - ASPARTATE AMINOTRANSFERASE INCREASED [None]
  - FOLATE DEFICIENCY [None]
  - HEPATIC STEATOSIS [None]
  - MEAN CELL VOLUME INCREASED [None]
  - PANCREATITIS [None]
